FAERS Safety Report 15512272 (Version 1)
Quarter: 2018Q4

REPORT INFORMATION
  Report Type: Spontaneous
  Country: US (occurrence: US)
  Receive Date: 20181016
  Receipt Date: 20181016
  Transmission Date: 20190205
  Serious: No
  Sender: FDA-Public Use
  Company Number: US-AMGEN-USASP2018078304

PATIENT
  Age: 56 Year
  Sex: Female
  Weight: 75.65 kg

DRUGS (4)
  1. CYCLOPHOSPHAMIDE. [Concomitant]
     Active Substance: CYCLOPHOSPHAMIDE
     Indication: BREAST CANCER
     Dosage: 1056 MG, UNK (X4)
     Dates: start: 20180607
  2. NEULASTA [Suspect]
     Active Substance: PEGFILGRASTIM
     Dosage: 6 UNK, UNK
     Route: 058
     Dates: start: 20180607
  3. DOCETAXEL. [Concomitant]
     Active Substance: DOCETAXEL
     Indication: BREAST CANCER
     Dosage: UNK UNK, Q3WK
     Dates: start: 20180607
  4. NEULASTA [Suspect]
     Active Substance: PEGFILGRASTIM
     Indication: NEUTROPENIA
     Dosage: 6 UNK, UNK
     Route: 058
     Dates: start: 20180607

REACTIONS (3)
  - Unintentional medical device removal [Unknown]
  - Application site pruritus [Unknown]
  - Application site discomfort [Unknown]

NARRATIVE: CASE EVENT DATE: 20180607
